FAERS Safety Report 5631307-8 (Version None)
Quarter: 2008Q1

REPORT INFORMATION
  Report Type: 
  Country: None (occurrence: None)
  Receive Date: 20080213
  Receipt Date: 20080204
  Transmission Date: 20080703
  Serious: Yes (Death)
  Sender: FDA-Public Use
  Company Number: 2008-01056

PATIENT
  Age: 30 Year
  Sex: Female

DRUGS (6)
  1. CHLORDIAZEPOXIDE/AMITRIPTYLIN HCL (UNKNOWN STRENGTH) (WATSON)(CHLORDIA [Suspect]
  2. CLONAZEPAM [Suspect]
  3. METHADONE HCL [Suspect]
  4. COCAINE(COCAINE) [Suspect]
  5. ESCITALOPRAM OXALATE [Suspect]
  6. CHLORAL HYDRATE(CHLORAL HYDRATE) [Suspect]

REACTIONS (1)
  - CARDIO-RESPIRATORY ARREST [None]
